FAERS Safety Report 5999956-5 (Version None)
Quarter: 2008Q4

REPORT INFORMATION
  Report Type: 
  Country: None (occurrence: None)
  Receive Date: 20081215
  Receipt Date: 20081211
  Transmission Date: 20090506
  Serious: Yes (Life-Threatening)
  Sender: FDA-Public Use
  Company Number: PHBS2008AU06657

PATIENT
  Age: 79 Year
  Sex: Male

DRUGS (1)
  1. METOPROLOL [Suspect]
     Dosage: 25 UNK, UNK

REACTIONS (1)
  - MYOCARDIAL INFARCTION [None]
